FAERS Safety Report 20368161 (Version 1)
Quarter: 2022Q1

REPORT INFORMATION
  Report Type: Spontaneous
  Country: GB (occurrence: GB)
  Receive Date: 20220124
  Receipt Date: 20220124
  Transmission Date: 20220423
  Serious: Yes (Death, Hospitalization, Other)
  Sender: FDA-Public Use
  Company Number: GB-EMA-DD-20200330-sandevhp-121438

PATIENT
  Age: 39 Year
  Sex: Male

DRUGS (19)
  1. PHENYTOIN [Suspect]
     Active Substance: PHENYTOIN
     Indication: Status epilepticus
     Dosage: UNKNOWN
     Route: 065
  2. LEVETIRACETAM [Suspect]
     Active Substance: LEVETIRACETAM
     Indication: Status epilepticus
     Dosage: UNKNOWN
     Route: 065
  3. LEVETIRACETAM [Suspect]
     Active Substance: LEVETIRACETAM
     Dosage: UNKNOWN
     Route: 065
  4. PHENOBARBITAL [Suspect]
     Active Substance: PHENOBARBITAL
     Indication: Status epilepticus
     Dosage: UNKNOWN
     Route: 065
  5. CLONAZEPAM [Suspect]
     Active Substance: CLONAZEPAM
     Indication: Status epilepticus
     Dosage: UNKNOWN
     Route: 065
  6. CLONAZEPAM [Suspect]
     Active Substance: CLONAZEPAM
     Dosage: UNKNOWN
     Route: 065
  7. THIOPENTAL SODIUM [Suspect]
     Active Substance: THIOPENTAL SODIUM
     Indication: Status epilepticus
     Dosage: 4.8 MG/KG, EVERY HOUR (UP TO 4.80 MG/KG/H)
     Route: 042
     Dates: start: 20161114, end: 20170109
  8. THIOPENTAL SODIUM [Suspect]
     Active Substance: THIOPENTAL SODIUM
     Dosage: UNKNOWN
     Route: 042
  9. VALPROATE SODIUM [Suspect]
     Active Substance: VALPROATE SODIUM
     Indication: Status epilepticus
     Dosage: UNKNOWN
     Route: 065
  10. VALPROATE SODIUM [Suspect]
     Active Substance: VALPROATE SODIUM
     Dosage: UNKNOWN
     Route: 065
  11. MIDAZOLAM [Suspect]
     Active Substance: MIDAZOLAM
     Indication: Status epilepticus
     Dosage: 20 MG, EVERY HOUR (20 MG/HR), ALL SEDATION STOPPED 28-JAN (20 MG,1 HR)
     Route: 042
     Dates: end: 20170128
  12. FENTANYL [Suspect]
     Active Substance: FENTANYL
     Indication: Status epilepticus
     Dosage: UNKNOWN
     Route: 065
  13. FENTANYL [Suspect]
     Active Substance: FENTANYL
     Dosage: 100 UG, EVERY HOUR, ALL SEDATION STOPPED 28-JAN (100 MICROGRAM PER 100 GRAM,1 HR)
     Route: 042
     Dates: end: 20170128
  14. PREDNISOLONE [Suspect]
     Active Substance: PREDNISOLONE
     Indication: Status epilepticus
     Dosage: UNKNOWN (HIGH DOSE)
     Route: 065
  15. PREDNISOLONE [Suspect]
     Active Substance: PREDNISOLONE
     Dosage: HIGH DOSE
     Route: 065
  16. PROPOFOL [Suspect]
     Active Substance: PROPOFOL
     Indication: Status epilepticus
     Dosage: UNKNOWN
     Route: 065
  17. PROPOFOL [Suspect]
     Active Substance: PROPOFOL
     Dosage: 1 MG/KG, EVERY HOUR, ALL SEDATION STOPPED 28-JAN (1 MG/KG,1 HR)
     Route: 042
     Dates: end: 20170128
  18. TOPIRAMATE [Suspect]
     Active Substance: TOPIRAMATE
     Indication: Status epilepticus
     Dosage: UNKNOWN
     Route: 065
  19. TOPIRAMATE [Suspect]
     Active Substance: TOPIRAMATE
     Dosage: UNKNOWN
     Route: 048

REACTIONS (17)
  - Product use in unapproved indication [Fatal]
  - Intentional product use issue [Fatal]
  - Intensive care unit acquired weakness [Fatal]
  - Abdominal wall haematoma [Fatal]
  - Acute kidney injury [Fatal]
  - Colitis ischaemic [Fatal]
  - Autonomic nervous system imbalance [Fatal]
  - Hepatitis fulminant [Fatal]
  - Malabsorption [Fatal]
  - Pseudomembranous colitis [Fatal]
  - Deep vein thrombosis [Fatal]
  - Multiple organ dysfunction syndrome [Fatal]
  - Coagulopathy [Fatal]
  - Sepsis [Fatal]
  - Off label use [Fatal]
  - Infection [Fatal]
  - Metabolic acidosis [Fatal]
